FAERS Safety Report 8360240-6 (Version None)
Quarter: 2012Q2

REPORT INFORMATION
  Report Type: 
  Country: None (occurrence: None)
  Receive Date: 20120515
  Receipt Date: 20110627
  Transmission Date: 20120825
  Serious: Yes (Hospitalization)
  Sender: FDA-Public Use
  Company Number: US-ALEXION PHARMACEUTICALS INC.-A201100986

PATIENT
  Sex: Female

DRUGS (14)
  1. AMBIEN [Concomitant]
     Dosage: UNK
     Route: 048
  2. ARIXTRA [Concomitant]
     Dosage: UNK
  3. LOMOTIL [Concomitant]
     Dosage: UNK
     Route: 048
  4. XANAX [Concomitant]
     Indication: ANXIETY
     Dosage: UNK
     Route: 048
  5. PRILOSEC [Concomitant]
     Dosage: UNK
     Route: 048
  6. PROMETHAZINE [Concomitant]
     Dosage: UNK
     Route: 048
  7. SOLIRIS [Suspect]
     Indication: PAROXYSMAL NOCTURNAL HAEMOGLOBINURIA
     Dosage: 1200 MG, Q2W
     Route: 042
  8. DILAUDID [Concomitant]
     Dosage: UNK
     Route: 048
  9. FLEXERIL [Concomitant]
     Dosage: UNK
     Route: 048
  10. HYDROCODONE BITARTRATE [Concomitant]
     Dosage: UNK
     Route: 048
  11. MS CONTIN [Concomitant]
     Dosage: UNK
     Route: 048
  12. PREDNISONE [Concomitant]
     Dosage: UNK
     Route: 048
  13. CARVEDILOL [Concomitant]
     Dosage: UNK
     Route: 048
  14. EXJADE [Concomitant]
     Dosage: UNK

REACTIONS (1)
  - ANAEMIA [None]
